FAERS Safety Report 4486505-6 (Version None)
Quarter: 2004Q4

REPORT INFORMATION
  Report Type: 
  Country: None (occurrence: None)
  Receive Date: 20041027
  Receipt Date: 20041015
  Transmission Date: 20050328
  Serious: Yes (Life-Threatening)
  Sender: FDA-Public Use
  Company Number: FR-JNJFOC-20041004929

PATIENT
  Age: 76 Year
  Sex: Female

DRUGS (9)
  1. HALDOL [Suspect]
     Dosage: 20 MG/ML
     Route: 049
  2. TEMESTA [Suspect]
     Route: 049
  3. NICARDIPINE HCL [Suspect]
     Dosage: 20 MG
     Route: 049
  4. ANAFRANIL [Suspect]
     Route: 049
  5. RIVOTRIL [Suspect]
     Route: 049
  6. TENORMIN [Suspect]
     Route: 049
  7. TRIVASTAL [Concomitant]
  8. INIPOMP [Concomitant]
  9. KARDEGIC [Concomitant]

REACTIONS (1)
  - HEPATITIS CHOLESTATIC [None]
